FAERS Safety Report 17277682 (Version 2)
Quarter: 2020Q1

REPORT INFORMATION
  Report Type: Spontaneous
  Country: US (occurrence: US)
  Receive Date: 20200116
  Receipt Date: 20200116
  Transmission Date: 20200409
  Serious: Yes (Hospitalization, Other)
  Sender: FDA-Public Use
  Company Number: US-GILEAD-2020-0446665

PATIENT
  Age: 50 Year
  Sex: Male

DRUGS (1)
  1. TRUVADA [Suspect]
     Active Substance: EMTRICITABINE\TENOFOVIR DISOPROXIL FUMARATE
     Indication: PROPHYLAXIS AGAINST HIV INFECTION
     Route: 065

REACTIONS (11)
  - Cardiac operation [Unknown]
  - Dural tear [Unknown]
  - Intentional dose omission [Unknown]
  - Craniotomy [Unknown]
  - Back injury [Unknown]
  - Fall [Unknown]
  - Spinal fusion surgery [Unknown]
  - Spinal fracture [Unknown]
  - Haematoma [Unknown]
  - Loss of consciousness [Unknown]
  - Hip arthroplasty [Unknown]

NARRATIVE: CASE EVENT DATE: 20180111
